FAERS Safety Report 4976510-5 (Version None)
Quarter: 2006Q2

REPORT INFORMATION
  Report Type: 
  Country: None (occurrence: None)
  Receive Date: 20060405
  Receipt Date: 20060328
  Transmission Date: 20061013
  Serious: Yes (Hospitalization)
  Sender: FDA-Public Use
  Company Number: MEDI-0004233

PATIENT
  Age: 4 Month
  Sex: Female

DRUGS (3)
  1. CYTOGAM [Suspect]
     Indication: ANTIVIRAL PROPHYLAXIS
     Dosage: 400 MG, INTRAVENOUS; SEE IMAGE
     Route: 042
     Dates: start: 20060206, end: 20060206
  2. CYTOGAM [Suspect]
     Indication: ANTIVIRAL PROPHYLAXIS
     Dosage: 400 MG, INTRAVENOUS; SEE IMAGE
     Route: 042
     Dates: start: 20060222, end: 20060222
  3. CYTOGAM [Suspect]

REACTIONS (4)
  - ANTI-ERYTHROCYTE ANTIBODY POSITIVE [None]
  - BLOOD BILIRUBIN INCREASED [None]
  - HAEMATOCRIT DECREASED [None]
  - HAEMOLYSIS [None]
